FAERS Safety Report 4378068-0 (Version None)
Quarter: 2004Q2

REPORT INFORMATION
  Report Type: 
  Country: None (occurrence: None)
  Receive Date: 20040616
  Receipt Date: 20040511
  Transmission Date: 20050107
  Serious: Yes (Hospitalization)
  Sender: FDA-Public Use
  Company Number: AU-BRISTOL-MYERS SQUIBB COMPANY-12584009

PATIENT
  Age: 41 Year
  Sex: Male

DRUGS (3)
  1. IFOSFAMIDE [Suspect]
     Indication: LYMPHOMA
     Route: 042
     Dates: start: 20040423, end: 20040423
  2. GEMZAR [Suspect]
     Indication: LYMPHOMA
     Route: 042
     Dates: start: 20040423, end: 20040423
  3. NAVELBINE [Suspect]
     Indication: LYMPHOMA
     Route: 042
     Dates: start: 20040423, end: 20040423

REACTIONS (2)
  - ATAXIA [None]
  - CONFUSIONAL STATE [None]
